FAERS Safety Report 7390643-8 (Version None)
Quarter: 2011Q2

REPORT INFORMATION
  Report Type: 
  Country: None (occurrence: None)
  Receive Date: 20110404
  Receipt Date: 20110328
  Transmission Date: 20111010
  Serious: No
  Sender: FDA-Public Use
  Company Number: US-BIOGENIDEC-2010BI026582

PATIENT
  Age: 40 Year
  Sex: Female

DRUGS (1)
  1. TYSABRI [Suspect]
     Indication: MULTIPLE SCLEROSIS
     Route: 042
     Dates: start: 20100629, end: 20110203

REACTIONS (7)
  - DRUG SPECIFIC ANTIBODY PRESENT [None]
  - SWOLLEN TONGUE [None]
  - OEDEMA PERIPHERAL [None]
  - EMOTIONAL DISTRESS [None]
  - PRURITUS GENERALISED [None]
  - WHEEZING [None]
  - HYPERSENSITIVITY [None]
